FAERS Safety Report 4668101-0 (Version None)
Quarter: 2005Q2

REPORT INFORMATION
  Report Type: 
  Country: None (occurrence: None)
  Receive Date: 20050521
  Receipt Date: 20050224
  Transmission Date: 20051028
  Serious: Yes (Other)
  Sender: FDA-Public Use
  Company Number: PHEH2005US02457

PATIENT
  Age: 47 Year
  Sex: Female

DRUGS (2)
  1. PAMIDRONATE DISODIUM [Suspect]
     Dosage: 90 MG, QMO
     Route: 042
  2. ZOLEDRONIC ACID [Suspect]
     Dosage: 4 MG, QMO
     Route: 042

REACTIONS (4)
  - ASEPTIC NECROSIS BONE [None]
  - PAIN IN JAW [None]
  - TOOTHACHE [None]
  - WOUND DEBRIDEMENT [None]
